FAERS Safety Report 6456505-5 (Version None)
Quarter: 2009Q4

REPORT INFORMATION
  Report Type: 
  Country: None (occurrence: None)
  Receive Date: 20091125
  Receipt Date: 20091113
  Transmission Date: 20100525
  Serious: Yes (Hospitalization)
  Sender: FDA-Public Use
  Company Number: JP-ELI_LILLY_AND_COMPANY-JP200911004055

PATIENT
  Sex: Female
  Weight: 38 kg

DRUGS (18)
  1. GEMCITABINE HCL [Suspect]
     Indication: PANCREATIC CARCINOMA NON-RESECTABLE
     Dosage: 1281 MG, OTHER
     Route: 042
     Dates: start: 20090924
  2. BLINDED THERAPY [Suspect]
     Indication: PANCREATIC CARCINOMA NON-RESECTABLE
     Dosage: 1 ML, WEEKLY (1/W)
     Route: 058
     Dates: start: 20090924
  3. BIOFERMIN R [Concomitant]
     Indication: GASTRITIS PROPHYLAXIS
     Dosage: 1 D/F, 3/D
     Route: 048
  4. MARZULENE S [Concomitant]
     Indication: GASTRITIS PROPHYLAXIS
     Dosage: 1 G, 3/D
     Route: 048
  5. LAXOBERON [Concomitant]
     Indication: CONSTIPATION
     Dosage: UNK, AS NEEDED
     Route: 048
  6. JU-KAMA [Concomitant]
     Indication: CONSTIPATION
     Dosage: 0.8 G, 3/D
     Route: 048
  7. ALOSENN                            /00476901/ [Concomitant]
     Indication: CONSTIPATION
     Dosage: 1 G, DAILY (1/D)
     Route: 048
  8. NASEA-OD [Concomitant]
     Indication: DECREASED APPETITE
     Dosage: 0.1 MG, DAILY (1/D)
     Route: 048
     Dates: start: 20090927
  9. PRIMPERAN /00041901/ [Concomitant]
     Indication: DECREASED APPETITE
     Dosage: 5 MG, 3/D
     Route: 048
     Dates: start: 20091015
  10. BORRAZA-G [Concomitant]
     Indication: HAEMORRHOIDS
     Dosage: UNK, AS NEEDED
     Route: 061
     Dates: start: 20091015
  11. DUROTEP [Concomitant]
     Indication: CANCER PAIN
     Route: 062
     Dates: start: 20091022
  12. PARIET [Concomitant]
     Indication: PROPHYLAXIS AGAINST GASTROINTESTINAL ULCER
     Dosage: 10 MG, 2/D
     Route: 048
     Dates: start: 20091022
  13. LASIX [Concomitant]
     Indication: ASCITES
     Dosage: 40 MG, DAILY (1/D)
     Route: 048
     Dates: start: 20091022, end: 20091111
  14. LASIX [Concomitant]
     Dosage: 20 MG, DAILY (1/D)
     Route: 048
     Dates: start: 20091112
  15. VENCOLL [Concomitant]
     Indication: CONSTIPATION
     Dosage: 1 D/F, 2/D
     Route: 048
     Dates: start: 20091106
  16. NERIPROCT [Concomitant]
     Indication: HAEMORRHOIDS
     Dosage: UNK, AS NEEDED
     Route: 061
     Dates: start: 20091112
  17. HALFDIGOXIN [Concomitant]
     Indication: ANGINA PECTORIS
     Dosage: 0.125 MG, DAILY (1/D)
     Route: 048
     Dates: start: 20091113
  18. LECICARBON [Concomitant]
     Indication: HAEMORRHOIDS
     Dosage: UNK, AS NEEDED
     Route: 054
     Dates: start: 20091114

REACTIONS (1)
  - DECREASED APPETITE [None]
